FAERS Safety Report 8197520-3 (Version None)
Quarter: 2012Q1

REPORT INFORMATION
  Report Type: 
  Country: None (occurrence: None)
  Receive Date: 20120309
  Receipt Date: 20120229
  Transmission Date: 20120608
  Serious: Yes (Other)
  Sender: FDA-Public Use
  Company Number: JP-MPIJNJ-2012-01615

PATIENT

DRUGS (6)
  1. DEXAMETHASONE [Concomitant]
  2. VELCADE [Suspect]
     Indication: MULTIPLE MYELOMA
     Dosage: UNK
     Route: 042
  3. CYCLOPHOSPHAMIDE [Concomitant]
  4. THALIDOMIDE [Concomitant]
     Route: 048
  5. CISPLATIN [Concomitant]
     Route: 042
  6. ETOPOSIDE [Concomitant]

REACTIONS (3)
  - ACUTE GRAFT VERSUS HOST DISEASE [None]
  - PANCYTOPENIA [None]
  - CHRONIC GRAFT VERSUS HOST DISEASE [None]
